FAERS Safety Report 15965375 (Version 3)
Quarter: 2019Q2

REPORT INFORMATION
  Report Type: Spontaneous
  Country: US (occurrence: US)
  Receive Date: 20190215
  Receipt Date: 20190408
  Transmission Date: 20190711
  Serious: Yes (Other)
  Sender: FDA-Public Use
  Company Number: US-ROCHE-2265730

PATIENT
  Age: 79 Year
  Sex: Female
  Weight: 82.63 kg

DRUGS (3)
  1. LOSARTAN. [Concomitant]
     Active Substance: LOSARTAN
     Route: 065
  2. XIIDRA [Concomitant]
     Active Substance: LIFITEGRAST
     Dosage: ONGOING: YES
     Route: 065
  3. LUCENTIS [Suspect]
     Active Substance: RANIBIZUMAB
     Indication: NEOVASCULAR AGE-RELATED MACULAR DEGENERATION
     Dosage: LAST INJECTION: 24-JAN-2019
     Route: 042
     Dates: start: 201806

REACTIONS (6)
  - Eye haemorrhage [Recovered/Resolved]
  - Nasal dryness [Unknown]
  - Neovascular age-related macular degeneration [Unknown]
  - Trigeminal neuralgia [Not Recovered/Not Resolved]
  - Inflammation [Unknown]
  - Alopecia [Not Recovered/Not Resolved]

NARRATIVE: CASE EVENT DATE: 20190124
